FAERS Safety Report 5541903-4 (Version None)
Quarter: 2007Q4

REPORT INFORMATION
  Report Type: 
  Country: None (occurrence: None)
  Receive Date: 20071210
  Receipt Date: 20071127
  Transmission Date: 20080405
  Serious: Yes (Other)
  Sender: FDA-Public Use
  Company Number: JP-AMGEN-US247057

PATIENT
  Sex: Female
  Weight: 2.61 kg

DRUGS (4)
  1. ENBREL [Suspect]
     Indication: RHEUMATOID ARTHRITIS
     Route: 064
     Dates: start: 20050908, end: 20060719
  2. ENBREL [Suspect]
     Route: 064
     Dates: start: 20060720, end: 20061029
  3. ENBREL [Suspect]
     Route: 064
     Dates: start: 20061030, end: 20070104
  4. ENBREL [Suspect]
     Route: 064
     Dates: start: 20070105, end: 20070830

REACTIONS (1)
  - NEONATAL ASPHYXIA [None]
